FAERS Safety Report 9301418 (Version 1)
Quarter: 2013Q2

REPORT INFORMATION
  Report Type: Report from Study
  Country: CH (occurrence: CH)
  Receive Date: 20130521
  Receipt Date: 20130521
  Transmission Date: 20140414
  Serious: Yes (Death, Hospitalization)
  Sender: FDA-Public Use
  Company Number: CH-BRISTOL-MYERS SQUIBB COMPANY-17383274

PATIENT
  Age: 70 Year
  Sex: Male

DRUGS (4)
  1. CETUXIMAB [Suspect]
     Indication: OESOPHAGEAL CARCINOMA
     Dosage: 28DEC12-600MG/M2?28-28DEC12-250MG/M2?4JAN13-ONG?RECENT DOSE 25JAN13
     Route: 042
     Dates: start: 20121228
  2. CISPLATIN [Suspect]
     Indication: OESOPHAGEAL CARCINOMA
     Dosage: RECENT DOSE 25JAN13
     Route: 042
     Dates: start: 20121228
  3. DOCETAXEL [Suspect]
     Indication: OESOPHAGEAL CARCINOMA
     Dosage: RECENT DOSE 25JAN13
     Route: 042
     Dates: start: 20121228
  4. ASPIRIN [Concomitant]
     Indication: CARDIOVASCULAR EVENT PROPHYLAXIS

REACTIONS (3)
  - Acute coronary syndrome [Fatal]
  - Anaemia [Unknown]
  - Gastrointestinal haemorrhage [Unknown]
